FAERS Safety Report 16751352 (Version 1)
Quarter: 2019Q3

REPORT INFORMATION
  Report Type: Spontaneous
  Country: US (occurrence: US)
  Receive Date: 20190828
  Receipt Date: 20190828
  Transmission Date: 20191005
  Serious: Yes (Death)
  Sender: FDA-Public Use
  Company Number: US-CELGENEUS-USA-20190809195

PATIENT
  Age: 77 Year
  Sex: Male
  Weight: 100.33 kg

DRUGS (2)
  1. REVLIMID [Suspect]
     Active Substance: LENALIDOMIDE
     Indication: PLASMA CELL MYELOMA
     Dosage: 25 MILLIGRAM
     Route: 048
     Dates: start: 20190729
  2. REVLIMID [Suspect]
     Active Substance: LENALIDOMIDE
     Indication: ILL-DEFINED DISORDER

REACTIONS (1)
  - Death [Fatal]

NARRATIVE: CASE EVENT DATE: 20190824
